FAERS Safety Report 12950256 (Version 2)
Quarter: 2016Q4

REPORT INFORMATION
  Report Type: Spontaneous
  Country: US (occurrence: US)
  Receive Date: 20161117
  Receipt Date: 20161229
  Transmission Date: 20170207
  Serious: Yes (Other)
  Sender: FDA-Public Use
  Company Number: US-UNITED THERAPEUTICS-UNT-2016-017150

PATIENT
  Sex: Male
  Weight: 68.93 kg

DRUGS (2)
  1. OPSUMIT [Concomitant]
     Active Substance: MACITENTAN
     Indication: PRODUCT USED FOR UNKNOWN INDICATION
  2. REMODULIN [Suspect]
     Active Substance: TREPROSTINIL
     Indication: PULMONARY HYPERTENSION
     Dosage: 0.00875 ?G/KG, CONTINUING
     Route: 058
     Dates: start: 20160928

REACTIONS (7)
  - Diarrhoea [Unknown]
  - Asthenia [Unknown]
  - Scleroderma [Unknown]
  - Infusion site pain [Unknown]
  - Insomnia [Unknown]
  - Infusion site swelling [Unknown]
  - Device dislocation [Unknown]

NARRATIVE: CASE EVENT DATE: 2016
